FAERS Safety Report 23353597 (Version 2)
Quarter: 2024Q1

REPORT INFORMATION
  Report Type: Spontaneous
  Country: FR (occurrence: FR)
  Receive Date: 20240101
  Receipt Date: 20240125
  Transmission Date: 20240409
  Serious: Yes (Death, Other)
  Sender: FDA-Public Use
  Company Number: FR-AFSSAPS-AM2023001145

PATIENT
  Age: 54 Year
  Sex: Male

DRUGS (4)
  1. BISOPROLOL [Suspect]
     Active Substance: BISOPROLOL\BISOPROLOL FUMARATE
     Indication: Anomalous atrioventricular excitation
     Dosage: 7.5 MILLIGRAM, ONCE A DAY
     Route: 065
     Dates: start: 20231128
  2. PERINDOPRIL [Suspect]
     Active Substance: PERINDOPRIL
     Indication: Left ventricular failure
     Dosage: 10 MILLIGRAM, ONCE A DAY
     Route: 048
     Dates: start: 20151115
  3. SPIRONOLACTONE [Suspect]
     Active Substance: SPIRONOLACTONE
     Indication: Left ventricular failure
     Dosage: 25 MILLIGRAM, ONCE A DAY
     Route: 048
     Dates: start: 20160315
  4. CORGARD [Suspect]
     Active Substance: NADOLOL
     Indication: Anomalous atrioventricular excitation
     Dosage: 40 MILLIGRAM, ONCE A DAY
     Route: 065
     Dates: start: 20171206, end: 20231127

REACTIONS (2)
  - Death [Fatal]
  - Product availability issue [Fatal]

NARRATIVE: CASE EVENT DATE: 20231128
